FAERS Safety Report 9573833 (Version 2)
Quarter: 2013Q4

REPORT INFORMATION
  Report Type: Spontaneous
  Country: US (occurrence: US)
  Receive Date: 20131001
  Receipt Date: 20131001
  Transmission Date: 20140711
  Serious: Yes (Other)
  Sender: FDA-Public Use
  Company Number: US-NAPPMUNDI-USA-2012-0082827

PATIENT
  Sex: Female

DRUGS (3)
  1. BUTRANS [Suspect]
     Indication: SUBSTANCE ABUSE
     Route: 062
  2. ALCOHOL [Suspect]
     Indication: SUBSTANCE ABUSE
  3. COCAINE [Suspect]
     Indication: SUBSTANCE ABUSE

REACTIONS (2)
  - Substance abuse [Unknown]
  - Convulsion [Unknown]
